FAERS Safety Report 6407688-4 (Version None)
Quarter: 2009Q4

REPORT INFORMATION
  Report Type: 
  Country: None (occurrence: None)
  Receive Date: 20091020
  Receipt Date: 20091006
  Transmission Date: 20100525
  Serious: Yes (Other)
  Sender: FDA-Public Use
  Company Number: AR-MYLANLABS-2009S1017471

PATIENT
  Age: 71 Year
  Sex: Female
  Weight: 65 kg

DRUGS (8)
  1. CLARITHROMYCIN [Suspect]
     Indication: PNEUMONIA
     Dosage: 1G/DAY
  2. CIPROFLOXACIN HYDROCHLORIDE [Interacting]
     Indication: PNEUMONIA
     Dosage: 1 G/DAY
  3. AMIODARONE [Interacting]
     Indication: ATRIAL FIBRILLATION
     Dosage: 300MG IN BOLUS
  4. AMIODARONE [Interacting]
     Indication: VENTRICULAR FIBRILLATION
     Dosage: 300MG IN BOLUS
  5. AMIODARONE [Interacting]
     Dosage: 900 MG/DAY INFUSION
  6. AMIODARONE [Interacting]
     Dosage: 900 MG/DAY INFUSION
  7. AMIODARONE [Interacting]
  8. AMIODARONE [Interacting]

REACTIONS (3)
  - DRUG INTERACTION [None]
  - ELECTROCARDIOGRAM QT PROLONGED [None]
  - VENTRICULAR TACHYCARDIA [None]
